FAERS Safety Report 4372894-X (Version None)
Quarter: 2004Q2

REPORT INFORMATION
  Report Type: 
  Country: None (occurrence: None)
  Receive Date: 20040603
  Receipt Date: 20040520
  Transmission Date: 20050107
  Serious: Yes (Hospitalization)
  Sender: FDA-Public Use
  Company Number: 02100-JPN-04-0098

PATIENT
  Age: 74 Year
  Sex: Female

DRUGS (12)
  1. CILOSTAZOL [Suspect]
     Indication: CEREBRAL INFARCTION
     Dosage: 100 MG
     Route: 048
     Dates: start: 20040205, end: 20040329
  2. CILOSTAZOL [Suspect]
     Indication: PROPHYLAXIS
     Dosage: 100 MG
     Route: 048
     Dates: start: 20040205, end: 20040329
  3. ASPIRIN [Suspect]
     Dosage: 81 MG
     Route: 048
     Dates: end: 20040329
  4. DOPAMINE HYDROCHLORIDE [Concomitant]
  5. AMANTADINE HCL [Concomitant]
  6. CABERGOLINE [Concomitant]
  7. VALSARTAN [Concomitant]
  8. DOMPERIDONE [Concomitant]
  9. EPERISONE HYDROCHLORIDE [Concomitant]
  10. IFENPRODIL TARTRATE [Concomitant]
  11. TOCOPHEROL ACETATE [Concomitant]
  12. ETIZOLAM [Concomitant]

REACTIONS (3)
  - FALL [None]
  - PSYCHOTIC DISORDER [None]
  - PUTAMEN HAEMORRHAGE [None]
